FAERS Safety Report 13906247 (Version 1)
Quarter: 2017Q3

REPORT INFORMATION
  Report Type: Spontaneous
  Country: US (occurrence: US)
  Receive Date: 20170825
  Receipt Date: 20170825
  Transmission Date: 20171127
  Serious: Yes (Other)
  Sender: FDA-Public Use
  Company Number: US-GILEAD-2017-0289622

PATIENT
  Age: 61 Year
  Sex: Female

DRUGS (4)
  1. RIBAVIRIN. [Concomitant]
     Active Substance: RIBAVIRIN
     Indication: HEPATITIS C
     Dosage: 400 MG, BID
     Route: 065
     Dates: start: 20140421
  2. PEGINTERFERON ALFA-2A. [Concomitant]
     Active Substance: PEGINTERFERON ALFA-2A
     Indication: HEPATITIS C
     Dosage: 180 MCG, UNK
     Dates: start: 20140421
  3. CALCITONIN [Concomitant]
     Active Substance: CALCITONIN
     Indication: OSTEOPOROSIS
  4. SOVALDI [Suspect]
     Active Substance: SOFOSBUVIR
     Indication: HEPATITIS C
     Dosage: 400 MG, UNK
     Route: 065
     Dates: start: 20140421

REACTIONS (14)
  - Pyrexia [Unknown]
  - Sinusitis [Not Recovered/Not Resolved]
  - Loss of consciousness [Unknown]
  - Nausea [Recovered/Resolved]
  - Respiratory disorder [Not Recovered/Not Resolved]
  - Asthma [Not Recovered/Not Resolved]
  - Fatigue [Recovering/Resolving]
  - Bronchitis [Not Recovered/Not Resolved]
  - Malaise [Unknown]
  - Impaired work ability [Unknown]
  - Bacteraemia [Not Recovered/Not Resolved]
  - Disorientation [Recovering/Resolving]
  - Thinking abnormal [Recovering/Resolving]
  - Haemophilus test positive [Not Recovered/Not Resolved]

NARRATIVE: CASE EVENT DATE: 201405
